FAERS Safety Report 25973868 (Version 2)
Quarter: 2025Q4

REPORT INFORMATION
  Report Type: Spontaneous
  Country: US (occurrence: US)
  Receive Date: 20251029
  Receipt Date: 20251125
  Transmission Date: 20260117
  Serious: Yes (Other)
  Sender: LUPIN
  Company Number: US-LUPIN PHARMACEUTICALS INC.-2025-09607

PATIENT
  Age: 68 Year
  Weight: 49.887 kg

DRUGS (1)
  1. ALBUTEROL SULFATE [Suspect]
     Active Substance: ALBUTEROL SULFATE
     Indication: Asthma
     Dosage: 1 PUFF IN THE MORNING AND THEN 2 INHALATION 4 TO 6 HOURS AS NEEDED

REACTIONS (3)
  - Lung carcinoma cell type unspecified stage IV [Unknown]
  - Wrong technique in product usage process [Unknown]
  - Device malfunction [Unknown]
